FAERS Safety Report 25124609 (Version 1)
Quarter: 2025Q1

REPORT INFORMATION
  Report Type: Spontaneous
  Country: US (occurrence: None)
  Receive Date: 20250324
  Receipt Date: 20250324
  Transmission Date: 20250408
  Serious: Yes (Other)
  Sender: FDA-CTU
  Company Number: None

PATIENT
  Sex: Female
  Weight: 72.57 kg

DRUGS (3)
  1. MIRENA [Suspect]
     Active Substance: LEVONORGESTREL
  2. Daily vitamin for women [Concomitant]
  3. ACV [Concomitant]

REACTIONS (3)
  - Dysuria [None]
  - Dysuria [None]
  - Myalgia [None]
